FAERS Safety Report 7478065-2 (Version None)
Quarter: 2011Q2

REPORT INFORMATION
  Report Type: 
  Country: None (occurrence: None)
  Receive Date: 20110513
  Receipt Date: 20101207
  Transmission Date: 20111010
  Serious: Yes (Hospitalization)
  Sender: FDA-Public Use
  Company Number: US-BAYER-201023574NA

PATIENT
  Age: 23 Year
  Sex: Female
  Weight: 58.957 kg

DRUGS (8)
  1. YASMIN [Suspect]
     Dosage: UNK UNK, QD
     Route: 048
     Dates: start: 20050425, end: 20050523
  2. AZITHROMYCIN [Concomitant]
     Indication: ANTIBIOTIC THERAPY
  3. CLARITIN [Concomitant]
     Indication: MULTIPLE ALLERGIES
  4. ZYRTEC [Concomitant]
     Indication: MULTIPLE ALLERGIES
  5. VICODIN [Concomitant]
     Indication: MYALGIA
  6. DIFFERIN [Concomitant]
     Indication: ACNE
  7. BETAMETHASONE [Concomitant]
     Indication: PSORIASIS
  8. PREDNISONE [Concomitant]
     Indication: VASCULITIS

REACTIONS (11)
  - CEREBROVASCULAR ACCIDENT [None]
  - NECK PAIN [None]
  - COGNITIVE DISORDER [None]
  - DEPRESSION [None]
  - ARTHRALGIA [None]
  - MIGRAINE [None]
  - HEADACHE [None]
  - BACK PAIN [None]
  - MENTAL DISORDER [None]
  - HEMIPARESIS [None]
  - ANXIETY [None]
